FAERS Safety Report 8816596 (Version 1)
Quarter: 2012Q4

REPORT INFORMATION
  Report Type: Spontaneous
  Country: FR (occurrence: None)
  Receive Date: 20120928
  Receipt Date: 20120928
  Transmission Date: 20130627
  Serious: Yes (Death)
  Sender: FDA-Public Use
  Company Number: TPA2012A06883

PATIENT
  Age: 91 Year
  Sex: Female

DRUGS (6)
  1. ADENURIC [Suspect]
     Indication: DRUG USE FOR UNKNOWN INDICATION
     Dates: start: 201202
  2. COLCHIMAX (COLCHICINE TIEMONIUM METHYLSULPHATE, PAPAVER SOMNIFERUM POWDER) [Concomitant]
  3. CRESTOR (ROSUVASTATIN CALCIUM) [Concomitant]
  4. PROCORALAN (IVABRADINE HYDROCHLORIDE) [Concomitant]
  5. ARIMIDEX (ANASTROZOLE) [Concomitant]
  6. CLASTOBAN (CLODRONATE DISODIUM) [Concomitant]

REACTIONS (2)
  - Cardiac arrest [None]
  - Hepatic cancer [None]
